FAERS Safety Report 20481491 (Version 1)
Quarter: 2022Q1

REPORT INFORMATION
  Report Type: Spontaneous
  Country: CN (occurrence: None)
  Receive Date: 20220216
  Receipt Date: 20220216
  Transmission Date: 20220423
  Serious: Yes (Hospitalization)
  Sender: FDA-Public Use
  Company Number: CN-Eisai Medical Research-EC-2022-108465

PATIENT
  Age: 80 Year
  Sex: Male

DRUGS (3)
  1. DONEPEZIL [Suspect]
     Active Substance: DONEPEZIL
     Indication: Vascular dementia
     Dosage: DOSE AND FREQUENCY UNKNOWN
     Route: 048
     Dates: start: 201904, end: 20210315
  2. MEMANTINE [Suspect]
     Active Substance: MEMANTINE
     Indication: Vascular dementia
     Dosage: DOSE AND FREQUENCY UNKNOWN
     Route: 065
     Dates: start: 201904, end: 20210315
  3. SODIUM OLIGOMANNATE [Concomitant]
     Indication: Vascular dementia
     Route: 048
     Dates: start: 20200428, end: 20210315

REACTIONS (1)
  - Pneumonia [Recovering/Resolving]

NARRATIVE: CASE EVENT DATE: 20210309
